FAERS Safety Report 17452098 (Version 1)
Quarter: 2020Q1

REPORT INFORMATION
  Report Type: Spontaneous
  Country: GR (occurrence: GR)
  Receive Date: 20200224
  Receipt Date: 20200224
  Transmission Date: 20200409
  Serious: Yes (Other)
  Sender: FDA-Public Use
  Company Number: GR-PFIZER INC-2020075123

PATIENT
  Age: 65 Year
  Sex: Male

DRUGS (1)
  1. FUNGUSTATIN [Suspect]
     Active Substance: FLUCONAZOLE
     Indication: ORAL FUNGAL INFECTION
     Dosage: 100 MG, UNK

REACTIONS (2)
  - Pemphigoid [Recovered/Resolved]
  - Fixed eruption [Recovered/Resolved]
